FAERS Safety Report 9422954 (Version 1)
Quarter: 2013Q3

REPORT INFORMATION
  Report Type: Spontaneous
  Country: SI (occurrence: SI)
  Receive Date: 20130726
  Receipt Date: 20130726
  Transmission Date: 20140515
  Serious: Yes (Other)
  Sender: FDA-Public Use
  Company Number: SI-ELI_LILLY_AND_COMPANY-SI201307006246

PATIENT
  Age: 56 Year
  Sex: Female

DRUGS (6)
  1. ALIMTA [Suspect]
     Indication: LUNG NEOPLASM MALIGNANT
     Dosage: 800 MG, UNK
     Route: 042
     Dates: start: 20130313, end: 20130607
  2. CONTROLOC [Concomitant]
  3. NAKLOFEN DUO [Concomitant]
  4. HELEX [Concomitant]
  5. ALPRAZOLAM [Concomitant]
  6. FOLIC ACID [Concomitant]

REACTIONS (1)
  - Soft tissue necrosis [Unknown]
